FAERS Safety Report 4414390-7 (Version None)
Quarter: 2004Q3

REPORT INFORMATION
  Report Type: 
  Country: None (occurrence: None)
  Receive Date: 20040701
  Receipt Date: 20030714
  Transmission Date: 20050211
  Serious: Yes (Hospitalization)
  Sender: FDA-Public Use
  Company Number: VISP-PR-0307S-0197(0)

PATIENT
  Age: 68 Year
  Sex: Female

DRUGS (1)
  1. VISIPAQUE [Suspect]
     Indication: BLOOD UREA INCREASED
     Dosage: 55 ML, SINGLE DOSE, I.V.
     Route: 042
     Dates: start: 20030711, end: 20030711

REACTIONS (1)
  - RENAL IMPAIRMENT [None]
